FAERS Safety Report 6848763-X (Version None)
Quarter: 2010Q3

REPORT INFORMATION
  Report Type: 
  Country: None (occurrence: None)
  Receive Date: 20100716
  Receipt Date: 20070910
  Transmission Date: 20110219
  Serious: No
  Sender: FDA-Public Use
  Company Number: US-PFIZER INC-2007076117

PATIENT
  Sex: Female
  Weight: 81.8 kg

DRUGS (5)
  1. CHANTIX [Suspect]
     Indication: SMOKING CESSATION THERAPY
     Dates: start: 20070902
  2. LISINOPRIL [Concomitant]
  3. SIMVASTATIN [Concomitant]
  4. VITAMINS [Concomitant]
  5. HERBAL PREPARATION [Concomitant]

REACTIONS (2)
  - INSOMNIA [None]
  - NAUSEA [None]
